FAERS Safety Report 5786141-5 (Version None)
Quarter: 2008Q2

REPORT INFORMATION
  Report Type: 
  Country: None (occurrence: None)
  Receive Date: 20080624
  Receipt Date: 20080620
  Transmission Date: 20081010
  Serious: Yes (Other)
  Sender: FDA-Public Use
  Company Number: A0734377A

PATIENT
  Age: 51 Year

DRUGS (3)
  1. NICORETTE [Suspect]
     Indication: SMOKING CESSATION THERAPY
     Route: 002
     Dates: start: 19970301
  2. TRIMETHOPRIM [Concomitant]
  3. CIPROFLOXACIN HCL [Concomitant]
     Dates: start: 20070101

REACTIONS (2)
  - DEPENDENCE [None]
  - OVERDOSE [None]
